FAERS Safety Report 6021869-3 (Version None)
Quarter: 2008Q4

REPORT INFORMATION
  Report Type: 
  Country: None (occurrence: None)
  Receive Date: 20081229
  Receipt Date: 20081218
  Transmission Date: 20090506
  Serious: Yes (Other)
  Sender: FDA-Public Use
  Company Number: GB-AMGEN-US325071

PATIENT
  Sex: Female

DRUGS (6)
  1. ENBREL [Suspect]
     Indication: RHEUMATOID ARTHRITIS
     Route: 065
     Dates: start: 20020101
  2. LANSOPRAZOLE [Concomitant]
     Dosage: UNKNOWN
     Route: 065
  3. SIMVASTATIN [Concomitant]
     Dosage: UNKNOWN
     Route: 065
  4. ALENDRONIC ACID [Concomitant]
     Dosage: UNKNOWN
     Route: 065
  5. METHOTREXATE [Concomitant]
     Route: 065
  6. FOLIC ACID [Concomitant]
     Dosage: 5 MG (FREQUENCY UNKNOWN)
     Route: 065

REACTIONS (1)
  - UVEITIS [None]
